FAERS Safety Report 15022163 (Version 1)
Quarter: 2018Q2

REPORT INFORMATION
  Report Type: Spontaneous
  Country: US (occurrence: US)
  Receive Date: 20180618
  Receipt Date: 20180618
  Transmission Date: 20180711
  Serious: Yes (Other)
  Sender: FDA-Public Use
  Company Number: US-SAKK-2018SA153960AA

PATIENT
  Sex: Female

DRUGS (1)
  1. PRALUENT [Suspect]
     Active Substance: ALIROCUMAB
     Dosage: 75 MG

REACTIONS (3)
  - Arthralgia [Unknown]
  - Drug dose omission [Unknown]
  - Wrist fracture [Unknown]

NARRATIVE: CASE EVENT DATE: 201802
